FAERS Safety Report 22168159 (Version 1)
Quarter: 2023Q2

REPORT INFORMATION
  Report Type: Spontaneous
  Country: US (occurrence: US)
  Receive Date: 20230403
  Receipt Date: 20230403
  Transmission Date: 20230722
  Serious: Yes (Other)
  Sender: FDA-Public Use
  Company Number: US-002147023-NVSC2023US072591

PATIENT
  Sex: Female

DRUGS (1)
  1. FULVESTRANT [Suspect]
     Active Substance: FULVESTRANT
     Indication: Neoplasm
     Dosage: 500 MG (DAYS 1 AND 15 OF CYCLE 1 AND ON DAY 1 OF ALL SUBSEQUENT CYCLES)
     Route: 030

REACTIONS (1)
  - Hypertension [Unknown]
